FAERS Safety Report 8744033 (Version 2)
Quarter: 2012Q4

REPORT INFORMATION
  Report Type: 
  Country: US (occurrence: US)
  Receive Date: 20120824
  Receipt Date: 20120914
  Transmission Date: 20130627
  Serious: Yes (Hospitalization, Other)
  Sender: FDA-Public Use
  Company Number: US-PFIZER INC-2012205036

PATIENT
  Age: 74 Year
  Sex: Male

DRUGS (3)
  1. LEVOXYL [Suspect]
     Indication: HYPOTHYROIDISM
     Dosage: 175 ug, UNK
     Route: 048
     Dates: end: 20120803
  2. LEVOXYL [Suspect]
     Dosage: 150 ug, UNK
     Route: 048
     Dates: start: 20120803
  3. LEVOXYL [Suspect]
     Dosage: 150 ug, 1x/day
     Route: 048
     Dates: start: 20120903

REACTIONS (2)
  - Dystonia [Recovering/Resolving]
  - Tremor [Unknown]
